FAERS Safety Report 8986498 (Version 1)
Quarter: 2012Q4

REPORT INFORMATION
  Report Type: 
  Country: SE (occurrence: SE)
  Receive Date: 20121227
  Receipt Date: 20121227
  Transmission Date: 20130627
  Serious: Yes (Hospitalization)
  Sender: FDA-Public Use
  Company Number: SE-BAYER-2012-132169

PATIENT
  Age: 72 Year
  Sex: Female

DRUGS (1)
  1. NEXAVAR [Suspect]
     Indication: LIVER, CANCER OF
     Dosage: UNK
     Dates: end: 2012

REACTIONS (1)
  - Gastric ulcer perforation [Recovered/Resolved]
